FAERS Safety Report 7046380-2 (Version None)
Quarter: 2010Q4

REPORT INFORMATION
  Report Type: 
  Country: None (occurrence: None)
  Receive Date: 20101014
  Receipt Date: 20100930
  Transmission Date: 20110411
  Serious: Yes (Hospitalization)
  Sender: FDA-Public Use
  Company Number: US-ROCHE-732655

PATIENT
  Sex: Male

DRUGS (2)
  1. PEGINTERFERON ALFA-2A [Suspect]
     Indication: HEPATITIS C
     Dosage: FORM: PRE-FILLED SYRINGES
     Route: 058
     Dates: start: 20100924
  2. RIBAVIRIN [Suspect]
     Indication: HEPATITIS C
     Dosage: VA DISPENSED, DIVIDED DOSES
     Route: 065
     Dates: start: 20100924

REACTIONS (2)
  - DYSPNOEA [None]
  - PULMONARY OEDEMA [None]
